FAERS Safety Report 17424605 (Version 1)
Quarter: 2020Q1

REPORT INFORMATION
  Report Type: Spontaneous
  Country: US (occurrence: US)
  Receive Date: 20200217
  Receipt Date: 20200217
  Transmission Date: 20200409
  Serious: No
  Sender: FDA-Public Use
  Company Number: US-ASTRAZENECA-2020SE21808

PATIENT
  Sex: Male

DRUGS (9)
  1. NEXIUM [Suspect]
     Active Substance: ESOMEPRAZOLE MAGNESIUM
     Route: 048
  2. CVS GLYCERIN CHILD [Concomitant]
  3. GOODSENSE ASPIRIN ADULT [Concomitant]
  4. FUROSEMIDE. [Concomitant]
     Active Substance: FUROSEMIDE
  5. SYNAGIS [Suspect]
     Active Substance: PALIVIZUMAB
     Indication: HEART DISEASE CONGENITAL
     Route: 030
  6. AMOXICILLIN. [Concomitant]
     Active Substance: AMOXICILLIN
  7. SYNAGIS [Suspect]
     Active Substance: PALIVIZUMAB
     Indication: ATRIAL SEPTAL DEFECT
     Route: 030
  8. FAMOTIDINE. [Concomitant]
     Active Substance: FAMOTIDINE
  9. CHILDRENS CHEWABLE ASPIRIN [Concomitant]
     Active Substance: ASPIRIN

REACTIONS (2)
  - Rhinorrhoea [Recovered/Resolved]
  - Pyrexia [Recovered/Resolved]
